FAERS Safety Report 15616833 (Version 9)
Quarter: 2020Q3

REPORT INFORMATION
  Report Type: Spontaneous
  Country: CA (occurrence: CA)
  Receive Date: 20181114
  Receipt Date: 20200926
  Transmission Date: 20201102
  Serious: Yes (Other)
  Sender: FDA-Public Use
  Company Number: CA-CELLTRION INC.-2018CA023850

PATIENT

DRUGS (11)
  1. INFLECTRA [Suspect]
     Active Substance: INFLIXIMAB-DYYB
     Dosage: 5 MG PER KG ROUND UP OR 400 MG, 0, 2, 6 THEN EVERY 8 WEEKS
     Route: 042
     Dates: start: 20190731
  2. INFLECTRA [Suspect]
     Active Substance: INFLIXIMAB-DYYB
     Dosage: 5 MG PER KG ROUND UP OR 400 MG, 0, 2, 6 THEN EVERY 8 WEEKS
     Route: 042
     Dates: start: 20190925
  3. INFLECTRA [Suspect]
     Active Substance: INFLIXIMAB-DYYB
     Dosage: 5 MG PER KG ROUND UP OR 400 MG, 0, 2, 6 THEN EVERY 8 WEEKS
     Route: 042
     Dates: start: 20190605
  4. INFLECTRA [Suspect]
     Active Substance: INFLIXIMAB-DYYB
     Indication: COLITIS ULCERATIVE
     Dosage: 5 MG PER KG ROUND UP OR 400 MG, 0, 2, 6 THEN EVERY 8 WEEKS
     Route: 042
     Dates: start: 20190213
  5. INFLECTRA [Suspect]
     Active Substance: INFLIXIMAB-DYYB
     Dosage: 5 MG PER KG ROUND UP OR 400 MG, 0, 2, 6 THEN EVERY 8 WEEKS
     Route: 042
     Dates: start: 20190410
  6. ASACOL [Concomitant]
     Active Substance: MESALAMINE
     Dosage: 1.6 G, 3X/DAY
     Route: 048
  7. INFLECTRA [Suspect]
     Active Substance: INFLIXIMAB-DYYB
     Indication: COLITIS
     Dosage: 5 MG/KG ROUND UP OR 400 MG, 0, 2, 6 THEN EVERY 8 WEEKS
     Route: 042
     Dates: start: 20181102
  8. INFLECTRA [Suspect]
     Active Substance: INFLIXIMAB-DYYB
     Dosage: 5 MG PER KG ROUND UP OR 400 MG, 0, 2, 6 THEN EVERY 8 WEEKS
     Route: 042
     Dates: start: 20200707
  9. INFLECTRA [Suspect]
     Active Substance: INFLIXIMAB-DYYB
     Dosage: 5 MG PER KG ROUND UP OR 400 MG, 0, 2, 6 THEN EVERY 8 WEEKS
     Route: 042
     Dates: start: 20190605
  10. INFLECTRA [Suspect]
     Active Substance: INFLIXIMAB-DYYB
     Dosage: 5 MG PER KG ROUND UP OR 400 MG, 0, 2, 6 THEN EVERY 8 WEEKS
     Route: 042
     Dates: start: 20200902
  11. SALOFALK  [MESALAZINE] [Concomitant]
     Active Substance: MESALAMINE
     Dosage: UNK
     Route: 054

REACTIONS (7)
  - Fatigue [Not Recovered/Not Resolved]
  - Oxygen saturation abnormal [Unknown]
  - Eye inflammation [Not Recovered/Not Resolved]
  - Rectal haemorrhage [Recovered/Resolved]
  - Arthralgia [Not Recovered/Not Resolved]
  - Condition aggravated [Unknown]
  - Heart rate irregular [Unknown]

NARRATIVE: CASE EVENT DATE: 20190731
